FAERS Safety Report 8221660-3 (Version None)
Quarter: 2012Q1

REPORT INFORMATION
  Report Type: 
  Country: None (occurrence: None)
  Receive Date: 20120314
  Receipt Date: 20120302
  Transmission Date: 20120608
  Serious: Yes (Other)
  Sender: FDA-Public Use
  Company Number: US-1190633

PATIENT
  Age: 72 Year
  Sex: Female
  Weight: 86.1834 kg

DRUGS (8)
  1. OFLOXACIN [Concomitant]
  2. VIGAMOX [Suspect]
     Indication: INTRAOCULAR LENS IMPLANT
     Dosage: OPTHALMIC
     Route: 047
     Dates: start: 20120209
  3. LIDOCAINE [Concomitant]
  4. BROMDAY [Concomitant]
  5. ALPHAGAN [Concomitant]
  6. BETADINE OPTHALMIC 0.5% OPTHALMIC SOLUTION (ALCON SURGICAL) [Suspect]
     Indication: INTRAOCULAR LENS IMPLANT
     Dosage: OPTHALMIC
     Route: 047
     Dates: start: 20120209
  7. BSS [Suspect]
     Indication: INTRAOCULAR LENS IMPLANT
     Dosage: INTRAOCULAR
     Route: 031
     Dates: start: 20120209, end: 20120209
  8. EPINEPHRINE [Concomitant]

REACTIONS (2)
  - TOXIC ANTERIOR SEGMENT SYNDROME [None]
  - MEDICATION ERROR [None]
